FAERS Safety Report 5197404-9 (Version None)
Quarter: 2006Q4

REPORT INFORMATION
  Report Type: 
  Country: None (occurrence: None)
  Receive Date: 20060928
  Receipt Date: 20060314
  Transmission Date: 20070319
  Serious: Yes (Hospitalization)
  Sender: FDA-Public Use
  Company Number: HQWYE343215MAR06

PATIENT
  Age: 23 Year
  Sex: Male
  Weight: 56.75 kg

DRUGS (7)
  1. RAPAMUNE [Suspect]
     Indication: RENAL TRANSPLANT
     Dosage: 2 MG 1X PER 1 DAY, ORAL
     Route: 048
     Dates: start: 20060209, end: 20060312
  2. PROGRAF [Concomitant]
  3. CELLCEPT [Concomitant]
  4. DIFLUCAN [Concomitant]
  5. BACTRIM [Concomitant]
  6. LIPITOR (ATORVASTATIN)Q [Concomitant]
  7. MULTIVITAMINS (ASCORBIC ACID/ERGOCALCIFEROL/FOLIC ACID/NICOTINAMIDE/PA [Concomitant]

REACTIONS (3)
  - ABDOMINAL PAIN [None]
  - DIARRHOEA [None]
  - WEIGHT DECREASED [None]
